FAERS Safety Report 23953129 (Version 2)
Quarter: 2024Q3

REPORT INFORMATION
  Report Type: Spontaneous
  Country: US (occurrence: US)
  Receive Date: 20240608
  Receipt Date: 20240812
  Transmission Date: 20241017
  Serious: Yes (Hospitalization, Disabling, Other)
  Sender: AMGEN
  Company Number: US-AMGEN-USASP2024108608

PATIENT
  Age: 79 Year
  Sex: Female
  Weight: 102.31 kg

DRUGS (18)
  1. TEPEZZA [Suspect]
     Active Substance: TEPROTUMUMAB-TRBW
     Indication: Endocrine ophthalmopathy
     Dosage: 1000 MILLIGRAM 2 (500MG) VIALS, Q3WK (FIRST INFUSION)
     Route: 042
     Dates: start: 20220304
  2. TEPEZZA [Suspect]
     Active Substance: TEPROTUMUMAB-TRBW
     Indication: Graves^ disease
     Dosage: 2000 MILLIGRAM (4 (500MG) VIALS), Q3WK (SECOND INFUSION)
     Route: 042
     Dates: start: 20220325
  3. TEPEZZA [Suspect]
     Active Substance: TEPROTUMUMAB-TRBW
     Dosage: 1980 MILLIGRAM (4 (500MG) VIALS), Q3WK (THIRD INFUSION)
     Route: 042
     Dates: start: 20220415
  4. TEPEZZA [Suspect]
     Active Substance: TEPROTUMUMAB-TRBW
     Dosage: 1920 MILLIGRAM (4 (500MG) VIALS), Q3WK (FOURTH INFUSION)
     Route: 042
     Dates: start: 20220506
  5. TEPEZZA [Suspect]
     Active Substance: TEPROTUMUMAB-TRBW
     Dosage: 1890 MILLIGRAM (4 (500 MG) VIALS), Q3WK (FIFTH INFUSION)
     Route: 042
     Dates: start: 20220527
  6. METFORMIN [Concomitant]
     Active Substance: METFORMIN HYDROCHLORIDE
     Indication: Diabetes mellitus
     Dosage: UNK
     Route: 065
     Dates: start: 2022
  7. SODIUM CHLORIDE [Concomitant]
     Active Substance: SODIUM CHLORIDE
     Dosage: 100 MILLILITER
     Route: 042
     Dates: start: 20220304
  8. SODIUM CHLORIDE [Concomitant]
     Active Substance: SODIUM CHLORIDE
     Dosage: 100 MILLILITER
     Route: 042
     Dates: start: 20220325
  9. SODIUM CHLORIDE [Concomitant]
     Active Substance: SODIUM CHLORIDE
     Dosage: 250 MILLIGRAM
     Route: 042
     Dates: start: 20220415
  10. SODIUM CHLORIDE [Concomitant]
     Active Substance: SODIUM CHLORIDE
     Dosage: 250 MILLIGRAM
     Route: 042
     Dates: start: 20220506
  11. SODIUM CHLORIDE [Concomitant]
     Active Substance: SODIUM CHLORIDE
     Dosage: 250 MILLIGRAM
     Route: 042
     Dates: start: 20220527
  12. BOTOX [Concomitant]
     Active Substance: ONABOTULINUMTOXINA
  13. OZEMPIC [Concomitant]
     Active Substance: SEMAGLUTIDE
     Route: 048
  14. DIOVAN HCT [Concomitant]
     Active Substance: HYDROCHLOROTHIAZIDE\VALSARTAN
     Dosage: 80 MILLIGRAM, QD
     Dates: start: 20210930
  15. BUDEPRION [Concomitant]
     Active Substance: BUPROPION HYDROCHLORIDE
     Dosage: 150 MILLIGRAM, QD (EXTENDED RELEASE TABLET)
     Dates: start: 20170803
  16. CARBOXYMETHYLCELLULOSE [Concomitant]
     Active Substance: CARBOXYMETHYLCELLULOSE
     Dosage: 2.5 MILLIGRAM PER MILLILITRE
     Dates: start: 20210930
  17. HYPROMELLOSES [Concomitant]
     Active Substance: HYPROMELLOSES
     Dosage: 3 MILLIGRAM PER MILLILITRE, QHS (OPHTHALMIC SOLUTION GENERAL GEL DROPS)
     Dates: start: 20210930
  18. Artificial tears [Concomitant]
     Dosage: BOTH EYES PM
     Dates: start: 20210930

REACTIONS (18)
  - Deafness neurosensory [Not Recovered/Not Resolved]
  - Physical disability [Unknown]
  - Endocrine ophthalmopathy [Unknown]
  - Graves^ disease [Unknown]
  - Atrial fibrillation [Recovered/Resolved]
  - Diabetes mellitus [Recovered/Resolved]
  - Glaucoma [Unknown]
  - Pain [Unknown]
  - Anxiety [Unknown]
  - Impaired quality of life [Not Recovered/Not Resolved]
  - Discomfort [Unknown]
  - Emotional distress [Unknown]
  - Tinnitus [Not Recovered/Not Resolved]
  - Physical product label issue [Unknown]
  - Gout [Unknown]
  - Blood pressure increased [Unknown]
  - Heart rate decreased [Unknown]
  - Visual impairment [Unknown]

NARRATIVE: CASE EVENT DATE: 20220101
